FAERS Safety Report 18717500 (Version 1)
Quarter: 2021Q1

REPORT INFORMATION
  Report Type: Spontaneous
  Country: US (occurrence: US)
  Receive Date: 20210107
  Receipt Date: 20210107
  Transmission Date: 20210419
  Serious: No
  Sender: FDA-Public Use
  Company Number: None

PATIENT
  Age: 71 Year
  Sex: Male
  Weight: 93 kg

DRUGS (1)
  1. CARVEDILOL (CARVEDILOL 12.5MG TAB) [Suspect]
     Active Substance: CARVEDILOL
     Indication: HYPERTENSION
     Route: 048
     Dates: start: 20141230, end: 20201105

REACTIONS (2)
  - Atrioventricular block [None]
  - Bradycardia [None]

NARRATIVE: CASE EVENT DATE: 20201105
